FAERS Safety Report 4290712-5 (Version None)
Quarter: 2004Q1

REPORT INFORMATION
  Report Type: 
  Country: None (occurrence: None)
  Receive Date: 20040211
  Receipt Date: 20031006
  Transmission Date: 20041129
  Serious: No
  Sender: FDA-Public Use
  Company Number: US-GLAXOSMITHKLINE-A0428957A

PATIENT
  Age: 43 Year
  Sex: Female

DRUGS (4)
  1. PAXIL [Suspect]
     Dosage: 20MG PER DAY
     Route: 048
     Dates: start: 20000801, end: 20030201
  2. PAXIL [Suspect]
     Dosage: 20MG VARIABLE DOSE
     Route: 048
     Dates: start: 20030201
  3. TOPROL-XL [Concomitant]
     Dosage: 100MG PER DAY
  4. ARMOUR [Concomitant]
     Dosage: 2GR PER DAY

REACTIONS (14)
  - ABDOMINAL DISCOMFORT [None]
  - ABDOMINAL PAIN UPPER [None]
  - CRYING [None]
  - DIARRHOEA [None]
  - DIZZINESS [None]
  - DRUG WITHDRAWAL SYNDROME [None]
  - FATIGUE [None]
  - HEADACHE [None]
  - HUNGER [None]
  - MOVEMENT DISORDER [None]
  - NAUSEA [None]
  - PARAESTHESIA [None]
  - SOMNOLENCE [None]
  - TREMOR [None]
